FAERS Safety Report 5832616-X (Version None)
Quarter: 2008Q3

REPORT INFORMATION
  Report Type: 
  Country: None (occurrence: None)
  Receive Date: 20080804
  Receipt Date: 20080724
  Transmission Date: 20090109
  Serious: Yes (Hospitalization, Other)
  Sender: FDA-Public Use
  Company Number: PHHY2008GB14494

PATIENT
  Sex: Male

DRUGS (4)
  1. CLOZARIL [Suspect]
     Indication: SCHIZOPHRENIA
     Dosage: 50 MG AT MORNING AND 250 MG AT NIGHT
     Dates: start: 19960507
  2. LEVOTHYROXINE SODIUM [Concomitant]
     Indication: CONGENITAL HYPOTHYROIDISM
     Dosage: 0.15 MG/DAY
  3. VALPROATE SODIUM [Concomitant]
     Indication: AFFECTIVE DISORDER
     Dosage: 1000 MG MORNING AND 1000 MG NIGHT
  4. VALPROATE SODIUM [Concomitant]
     Dosage: 1 G, BID

REACTIONS (10)
  - BLOOD GLUCOSE ABNORMAL [None]
  - BODY TEMPERATURE INCREASED [None]
  - DYSURIA [None]
  - MALAISE [None]
  - MICTURITION URGENCY [None]
  - PLATELET COUNT DECREASED [None]
  - POLLAKIURIA [None]
  - SUPRAPUBIC PAIN [None]
  - URINARY TRACT INFECTION [None]
  - WHITE BLOOD CELL DISORDER [None]
